FAERS Safety Report 8390959-2 (Version None)
Quarter: 2012Q2

REPORT INFORMATION
  Report Type: 
  Country: None (occurrence: None)
  Receive Date: 20120529
  Receipt Date: 20120523
  Transmission Date: 20120825
  Serious: Yes (Life-Threatening)
  Sender: FDA-Public Use
  Company Number: PHHY2012FR010016

PATIENT
  Sex: Male

DRUGS (13)
  1. REPAGLINIDE [Concomitant]
     Dosage: 2 MG, TID
  2. ESOMEPRAZOLE MAGNESIUM [Concomitant]
     Dosage: 20 OT, QD
  3. CREON [Concomitant]
     Dosage: 12000 OT, BID
  4. FENOFIBRATE [Concomitant]
     Dosage: 145 OT, QD
  5. ARANESP [Concomitant]
     Dosage: 150 OT, QW
  6. AFINITOR [Suspect]
     Indication: RENAL CANCER METASTATIC
     Dosage: 10 MG, QD
     Dates: start: 20111223, end: 20120418
  7. HYDROCORTISONE [Concomitant]
     Dosage: 10 OT, BID
  8. VALSARTAN [Concomitant]
     Dosage: 160 OT, QD
  9. LANTUS [Concomitant]
     Dosage: 22 IU, UNK
  10. LEVOTHYROXINE SODIUM [Concomitant]
     Dosage: 100 OT, QD
  11. LEXOMIL [Concomitant]
  12. XANAX [Concomitant]
     Dosage: 0.5 OT, UNK
  13. ACTOS [Concomitant]

REACTIONS (7)
  - STOMATITIS [None]
  - INFECTION [None]
  - ANAEMIA [None]
  - HYPERGLYCAEMIA [None]
  - HYPERCHOLESTEROLAEMIA [None]
  - ADRENAL INSUFFICIENCY [None]
  - HYPERTRIGLYCERIDAEMIA [None]
